FAERS Safety Report 10720473 (Version 1)
Quarter: 2015Q1

REPORT INFORMATION
  Report Type: Report from Study
  Country: US (occurrence: US)
  Receive Date: 20150119
  Receipt Date: 20150119
  Transmission Date: 20150721
  Serious: Yes (Other)
  Sender: FDA-Public Use
  Company Number: US-ABBVIE-15K-163-1333277-00

PATIENT
  Age: 67 Year
  Sex: Female
  Weight: 73.09 kg

DRUGS (2)
  1. CELEBREX [Concomitant]
     Active Substance: CELECOXIB
     Indication: RHEUMATOID ARTHRITIS
  2. HUMIRA [Suspect]
     Active Substance: ADALIMUMAB
     Indication: RHEUMATOID ARTHRITIS
     Route: 065
     Dates: start: 2012, end: 20141205

REACTIONS (5)
  - Localised infection [Recovered/Resolved]
  - Exostosis [Recovered/Resolved]
  - Tendon rupture [Recovered/Resolved]
  - Pain in extremity [Recovering/Resolving]
  - Ligament sprain [Recovered/Resolved]

NARRATIVE: CASE EVENT DATE: 201412
